FAERS Safety Report 5707144-2 (Version None)
Quarter: 2008Q2

REPORT INFORMATION
  Report Type: 
  Country: None (occurrence: None)
  Receive Date: 20080416
  Receipt Date: 20080409
  Transmission Date: 20081010
  Serious: Yes (Hospitalization)
  Sender: FDA-Public Use
  Company Number: FR-ROCHE-509653

PATIENT
  Sex: Male
  Weight: 78 kg

DRUGS (2)
  1. CAPECITABINE [Suspect]
     Route: 048
     Dates: start: 20070312
  2. OXALIPLATIN [Suspect]
     Route: 042
     Dates: start: 20070312

REACTIONS (1)
  - PELVIC ABSCESS [None]
